FAERS Safety Report 24396472 (Version 1)
Quarter: 2024Q4

REPORT INFORMATION
  Report Type: Report from Study
  Country: IT (occurrence: IT)
  Receive Date: 20241004
  Receipt Date: 20241004
  Transmission Date: 20250115
  Serious: Yes (Other)
  Sender: RANBAXY
  Company Number: IT-SUN PHARMACEUTICAL INDUSTRIES LTD-2024RR-471269

PATIENT
  Age: 66 Year
  Sex: Male

DRUGS (7)
  1. IMATINIB [Suspect]
     Active Substance: IMATINIB
     Indication: Advanced systemic mastocytosis
     Dosage: 400 MILLIGRAM, DAILY
     Route: 065
  2. DOXORUBICIN [Suspect]
     Active Substance: DOXORUBICIN
     Indication: Advanced systemic mastocytosis
     Dosage: UNK
     Route: 065
  3. VINCRISTINE [Suspect]
     Active Substance: VINCRISTINE
     Indication: Advanced systemic mastocytosis
     Dosage: UNK
     Route: 065
  4. PREDNISONE [Suspect]
     Active Substance: PREDNISONE
     Indication: Advanced systemic mastocytosis
     Dosage: UNK
     Route: 065
  5. DECITABINE [Suspect]
     Active Substance: DECITABINE
     Indication: Advanced systemic mastocytosis
     Dosage: UNK
     Route: 065
  6. RITUXIMAB [Suspect]
     Active Substance: RITUXIMAB
     Indication: Advanced systemic mastocytosis
     Dosage: UNK
     Route: 065
  7. CYCLOPHOSPHAMIDE [Suspect]
     Active Substance: CYCLOPHOSPHAMIDE
     Indication: Advanced systemic mastocytosis
     Dosage: UNK
     Route: 065

REACTIONS (3)
  - Therapeutic product effect incomplete [Unknown]
  - Drug ineffective [Unknown]
  - Disease progression [Unknown]
